FAERS Safety Report 5379594-8 (Version None)
Quarter: 2007Q3

REPORT INFORMATION
  Report Type: 
  Country: None (occurrence: None)
  Receive Date: 20070706
  Receipt Date: 20070627
  Transmission Date: 20080115
  Serious: Yes (Hospitalization)
  Sender: FDA-Public Use
  Company Number: FR-RB-007113-07

PATIENT
  Age: 36 Year
  Sex: Male

DRUGS (5)
  1. SUBUTEX [Suspect]
     Indication: DRUG USE FOR UNKNOWN INDICATION
     Dosage: DOSAGE UNKNOWN.
     Route: 042
  2. EFFEXOR [Concomitant]
     Indication: DRUG USE FOR UNKNOWN INDICATION
     Dosage: DOSAGE UNKNOWN.
     Route: 065
  3. NOZIAN [Concomitant]
     Indication: DRUG USE FOR UNKNOWN INDICATION
     Dosage: DOSAGE UNKNOWN.
     Route: 065
  4. ZOLPIDEM TARTRATE [Concomitant]
     Indication: DRUG USE FOR UNKNOWN INDICATION
     Dosage: DOSAGE UNKNOWN.
     Route: 065
  5. METHADONE HCL [Concomitant]
     Dosage: DOSAGE UNKNOWN.
     Route: 065

REACTIONS (2)
  - INTENTIONAL DRUG MISUSE [None]
  - OSTEOMYELITIS [None]
